FAERS Safety Report 14472403 (Version 4)
Quarter: 2018Q2

REPORT INFORMATION
  Report Type: Report from Study
  Country: None (occurrence: US)
  Receive Date: 20180201
  Receipt Date: 20180403
  Transmission Date: 20180711
  Serious: Yes (Other)
  Sender: FDA-Public Use
  Company Number: US-ABBVIE-18K-163-2227256-00

PATIENT
  Sex: Female

DRUGS (1)
  1. HUMIRA [Suspect]
     Active Substance: ADALIMUMAB
     Indication: UVEITIS
     Route: 058
     Dates: start: 201610

REACTIONS (11)
  - Weight decreased [Not Recovered/Not Resolved]
  - Diarrhoea [Not Recovered/Not Resolved]
  - Malaise [Not Recovered/Not Resolved]
  - Post procedural complication [Not Recovered/Not Resolved]
  - Blindness [Not Recovered/Not Resolved]
  - Uveitis [Not Recovered/Not Resolved]
  - Cataract [Recovered/Resolved]
  - Cataract [Recovering/Resolving]
  - Myopia [Not Recovered/Not Resolved]
  - Arthralgia [Recovering/Resolving]
  - Sinusitis [Recovered/Resolved]
